FAERS Safety Report 7241707-0 (Version None)
Quarter: 2011Q1

REPORT INFORMATION
  Report Type: 
  Country: None (occurrence: None)
  Receive Date: 20110124
  Receipt Date: 20110118
  Transmission Date: 20110831
  Serious: Yes (Death, Hospitalization)
  Sender: FDA-Public Use
  Company Number: PHHY2011US04999

PATIENT
  Sex: Male
  Weight: 57.098 kg

DRUGS (1)
  1. ERL 080A [Suspect]
     Indication: RENAL TRANSPLANT
     Dosage: 1440 MG, UNK
     Route: 048
     Dates: start: 20080331, end: 20101217

REACTIONS (10)
  - DEATH [None]
  - SEPTIC SHOCK [None]
  - HYPONATRAEMIA [None]
  - DEHYDRATION [None]
  - HAEMODYNAMIC INSTABILITY [None]
  - DIARRHOEA [None]
  - URINARY INCONTINENCE [None]
  - HYPOCALCAEMIA [None]
  - THROMBOCYTOPENIA [None]
  - PYREXIA [None]
